FAERS Safety Report 5003204-2 (Version None)
Quarter: 2006Q2

REPORT INFORMATION
  Report Type: 
  Country: None (occurrence: None)
  Receive Date: 20060510
  Receipt Date: 20060425
  Transmission Date: 20061013
  Serious: Yes (Hospitalization, Disabling)
  Sender: FDA-Public Use
  Company Number: 408667

PATIENT
  Age: 22 Year
  Sex: Female
  Weight: 64.9 kg

DRUGS (6)
  1. ACCUTANE [Suspect]
     Indication: ACNE CYSTIC
     Dosage: ORAL
     Route: 048
     Dates: start: 19920708, end: 20000622
  2. BIRTH CONTROL PILLS (ORAL CONTRACEPTIVE NOS) [Concomitant]
  3. ORTHO TRI-CYCLEN [Concomitant]
  4. PHENERGAN (PROMETHAZINE HYDROCHLORIDE) [Concomitant]
  5. ACETAMINOPHEN [Concomitant]
  6. ZANTAC [Concomitant]

REACTIONS (90)
  - ABDOMINAL ADHESIONS [None]
  - ABORTION SPONTANEOUS [None]
  - ANAEMIA [None]
  - ANHEDONIA [None]
  - ANORECTAL DISORDER [None]
  - ANXIETY [None]
  - BACK PAIN [None]
  - BLINDNESS [None]
  - BLOOD ALKALINE PHOSPHATASE DECREASED [None]
  - BLOOD UREA INCREASED [None]
  - BURNING SENSATION [None]
  - CANDIDIASIS [None]
  - CHANGE OF BOWEL HABIT [None]
  - CHRONIC FATIGUE SYNDROME [None]
  - COLITIS [None]
  - COLITIS ULCERATIVE [None]
  - CONSTIPATION [None]
  - DECREASED APPETITE [None]
  - DEFORMITY [None]
  - DEPRESSION [None]
  - DERMATITIS [None]
  - DIARRHOEA HAEMORRHAGIC [None]
  - DRUG EXPOSURE DURING PREGNANCY [None]
  - DRY SKIN [None]
  - DYSPEPSIA [None]
  - ECZEMA [None]
  - EMOTIONAL DISTRESS [None]
  - ENDOMETRIOSIS [None]
  - EOSINOPHIL PERCENTAGE DECREASED [None]
  - FALLOPIAN TUBE DISORDER [None]
  - FATIGUE [None]
  - FIBROCYSTIC BREAST DISEASE [None]
  - FUNGAL INFECTION [None]
  - GALACTORRHOEA [None]
  - GASTRITIS [None]
  - GASTROINTESTINAL DISORDER [None]
  - GASTROOESOPHAGEAL REFLUX DISEASE [None]
  - GLUCOSE URINE PRESENT [None]
  - HAEMATEMESIS [None]
  - HAEMOGLOBIN INCREASED [None]
  - HAEMORRHAGE [None]
  - HAEMORRHOIDS [None]
  - HEADACHE [None]
  - HELICOBACTER INFECTION [None]
  - HYDRONEPHROSIS [None]
  - INCISION SITE COMPLICATION [None]
  - INFLAMMATORY BOWEL DISEASE [None]
  - INJURY [None]
  - INSOMNIA [None]
  - INTESTINAL HAEMORRHAGE [None]
  - IRRITABLE BOWEL SYNDROME [None]
  - LARGE INTESTINAL ULCER [None]
  - LIP DRY [None]
  - LYMPHOCYTE PERCENTAGE DECREASED [None]
  - MEAN CELL HAEMOGLOBIN INCREASED [None]
  - MENORRHAGIA [None]
  - METRORRHAGIA [None]
  - MUCOUS STOOLS [None]
  - MYALGIA [None]
  - NASAL CONGESTION [None]
  - NERVOUSNESS [None]
  - NEUTROPHIL PERCENTAGE INCREASED [None]
  - NIGHT BLINDNESS [None]
  - NITRITE URINE [None]
  - PAIN [None]
  - PELVIC PAIN [None]
  - PHARMACEUTICAL PRODUCT COMPLAINT [None]
  - POLLAKIURIA [None]
  - POOR QUALITY DRUG ADMINISTERED [None]
  - PROCTALGIA [None]
  - PROCTITIS [None]
  - PRURITUS [None]
  - RASH [None]
  - RECTAL HAEMORRHAGE [None]
  - RENAL DISORDER [None]
  - RETCHING [None]
  - SEDATION [None]
  - SMEAR CERVIX ABNORMAL [None]
  - THIRST [None]
  - UPPER RESPIRATORY TRACT INFECTION [None]
  - URGE INCONTINENCE [None]
  - URINARY TRACT INFECTION [None]
  - URINE BILIRUBIN INCREASED [None]
  - URINE ODOUR ABNORMAL [None]
  - UTERINE LEIOMYOMA [None]
  - UTERINE PROLAPSE [None]
  - VAGINAL BURNING SENSATION [None]
  - VAGINAL DISCHARGE [None]
  - VOMITING [None]
  - WEIGHT DECREASED [None]
